FAERS Safety Report 6129460-5 (Version None)
Quarter: 2009Q1

REPORT INFORMATION
  Report Type: 
  Country: None (occurrence: None)
  Receive Date: 20090324
  Receipt Date: 20090320
  Transmission Date: 20090719
  Serious: Yes (Hospitalization)
  Sender: FDA-Public Use
  Company Number: US-JNJFOC-20090303195

PATIENT
  Sex: Female
  Weight: 63.96 kg

DRUGS (10)
  1. CISAPRIDE [Suspect]
     Route: 048
  2. CISAPRIDE [Suspect]
     Indication: GASTROINTESTINAL MOTILITY DISORDER
     Route: 048
  3. CISAPRIDE [Suspect]
     Indication: GASTROOESOPHAGEAL REFLUX DISEASE
     Route: 048
  4. CYMBALTA [Concomitant]
     Indication: DIABETIC NEUROPATHY
     Route: 048
  5. LYRICA [Concomitant]
     Indication: DIABETIC NEUROPATHY
     Route: 065
  6. LEVEMIR [Concomitant]
     Dosage: EVERY EVENING
     Route: 058
  7. LEVEMIR [Concomitant]
     Indication: DIABETES MELLITUS
     Dosage: 13 UNITS EVERY MORNING
     Route: 058
  8. LIPITOR [Concomitant]
     Indication: HYPERLIPIDAEMIA
     Dosage: AT BEDTIME
     Route: 048
  9. NOVOLOG [Concomitant]
     Indication: DIABETES MELLITUS
     Dosage: SLIDING SCALE DAILY WITH MEALS
     Route: 065
  10. LISINOPRIL [Concomitant]
     Indication: HYPERTENSION
     Route: 048

REACTIONS (2)
  - NAUSEA [None]
  - VOMITING [None]
